FAERS Safety Report 10242575 (Version 2)
Quarter: 2014Q2

REPORT INFORMATION
  Report Type: Spontaneous
  Country: GB (occurrence: GB)
  Receive Date: 20140617
  Receipt Date: 20140617
  Transmission Date: 20141212
  Serious: Yes (Other)
  Sender: FDA-Public Use
  Company Number: ALCN2007GB001486

PATIENT
  Age: 60 Year
  Sex: Female

DRUGS (3)
  1. TIMOLOL [Suspect]
     Indication: INTRAOCULAR PRESSURE INCREASED
     Dosage: UNK
     Route: 047
     Dates: start: 2003
  2. DORZOLAMIDE [Suspect]
     Indication: INTRAOCULAR PRESSURE INCREASED
     Route: 047
  3. FLUOROURACIL [Concomitant]
     Indication: POSTOPERATIVE CARE
     Dosage: UNK

REACTIONS (3)
  - Hypotony of eye [Recovered/Resolved]
  - Choroidal detachment [Recovered/Resolved]
  - Visual acuity reduced [Recovered/Resolved]
